FAERS Safety Report 7391256-4 (Version None)
Quarter: 2011Q2

REPORT INFORMATION
  Report Type: 
  Country: None (occurrence: None)
  Receive Date: 20110404
  Receipt Date: 20110330
  Transmission Date: 20111010
  Serious: Yes (Hospitalization, Other)
  Sender: FDA-Public Use
  Company Number: US-B.I. PHARMACEUTICALS,INC./RIDGEFIELD-2011-BP-03627BP

PATIENT
  Sex: Female

DRUGS (6)
  1. NITROGLYCERIN [Concomitant]
     Indication: CHEST PAIN
     Route: 048
  2. PERCOCET [Concomitant]
     Indication: ANXIETY
     Route: 048
  3. OXYGEN [Concomitant]
     Indication: CHRONIC OBSTRUCTIVE PULMONARY DISEASE
     Route: 045
  4. VALIUM [Concomitant]
     Indication: ANXIETY
     Dosage: 30 MG
     Route: 048
  5. SPIRIVA [Suspect]
     Indication: CHRONIC OBSTRUCTIVE PULMONARY DISEASE
     Dosage: 18 MCG
     Route: 055
     Dates: start: 20100801, end: 20101018
  6. LISINOPRIL [Concomitant]
     Indication: HYPERTENSION
     Dosage: 2.5 MG
     Route: 048

REACTIONS (10)
  - PNEUMONIA [None]
  - DYSPNOEA [None]
  - MUSCULOSKELETAL PAIN [None]
  - BLISTER [None]
  - HEADACHE [None]
  - INSOMNIA [None]
  - ANXIETY DISORDER [None]
  - RASH [None]
  - MYOCARDIAL INFARCTION [None]
  - LUNG DISORDER [None]
